FAERS Safety Report 7511069-X (Version None)
Quarter: 2011Q2

REPORT INFORMATION
  Report Type: 
  Country: None (occurrence: None)
  Receive Date: 20110531
  Receipt Date: 20110516
  Transmission Date: 20111010
  Serious: Yes (Disabling, Other)
  Sender: FDA-Public Use
  Company Number: FR-JNJFOC-20110302891

PATIENT
  Age: 15 Year
  Sex: Female

DRUGS (3)
  1. REMICADE [Suspect]
     Indication: CROHN'S DISEASE
     Route: 042
     Dates: start: 20030601, end: 20050501
  2. REMICADE [Suspect]
     Route: 042
     Dates: start: 20050501, end: 20060901
  3. AZATHIOPRINE [Concomitant]
     Indication: CROHN'S DISEASE
     Dates: start: 20020101, end: 20070201

REACTIONS (1)
  - LUPUS-LIKE SYNDROME [None]
